FAERS Safety Report 16174175 (Version 1)
Quarter: 2019Q2

REPORT INFORMATION
  Report Type: Spontaneous
  Country: US (occurrence: US)
  Receive Date: 20190408
  Receipt Date: 20190408
  Transmission Date: 20190711
  Serious: Yes (Disabling)
  Sender: FDA-Public Use
  Company Number: None

PATIENT
  Age: 34 Year
  Sex: Female

DRUGS (1)
  1. CORTIZONE 10 [Suspect]
     Active Substance: HYDROCORTISONE

REACTIONS (5)
  - Mental disorder [None]
  - Dermatitis contact [None]
  - Skin disorder [None]
  - Hormone level abnormal [None]
  - Condition aggravated [None]

NARRATIVE: CASE EVENT DATE: 20190407
